FAERS Safety Report 18171821 (Version 3)
Quarter: 2020Q3

REPORT INFORMATION
  Report Type: Spontaneous
  Country: JP (occurrence: JP)
  Receive Date: 20200820
  Receipt Date: 20200909
  Transmission Date: 20201103
  Serious: Yes (Other)
  Sender: FDA-Public Use
  Company Number: JP-SA-2020SA215976

PATIENT

DRUGS (7)
  1. MAGNESIUM OXIDE. [Concomitant]
     Active Substance: MAGNESIUM OXIDE
     Indication: CONSTIPATION
     Dosage: REGULAR MEDICATION
     Route: 048
  2. CLOTIAZEPAM [Concomitant]
     Active Substance: CLOTIAZEPAM
     Indication: TINNITUS
     Dosage: AS?NEEDED MEDICATION
     Route: 065
  3. LOXOPROFEN SODIUM HYDRATE [Concomitant]
     Active Substance: LOXOPROFEN SODIUM DIHYDRATE
     Indication: HEADACHE
     Dosage: AS?NEEDED MEDICATION
     Route: 048
  4. MIYA?BM [Concomitant]
     Active Substance: CLOSTRIDIUM BUTYRICUM SPORES STRAIN M-55
     Indication: ABDOMINAL DISTENSION
     Dosage: REGULAR MEDICATION
     Route: 048
  5. HOCHUEKKITO [ANGELICA ACUTILOBA ROOT;ASTRAGALUS SPP. ROOT;ATRACTYLODES [Concomitant]
     Active Substance: HERBALS
     Indication: DECREASED APPETITE
     Dosage: REGULAR MEDICATION
     Route: 048
     Dates: start: 20200717
  6. FEXOFENADINA SANIK 60MG [Suspect]
     Active Substance: FEXOFENADINE HYDROCHLORIDE
     Indication: RHINITIS ALLERGIC
     Dosage: DAILY DOSAGE: 60 MG (ONCE A DAY, TAKEN AS NEEDED, MORNING)
     Route: 048
     Dates: start: 20190820
  7. LANSOPRAZOLE. [Concomitant]
     Active Substance: LANSOPRAZOLE
     Indication: GASTRITIS
     Dosage: REGULAR MEDICATION
     Route: 048

REACTIONS (3)
  - Facial paralysis [Unknown]
  - Stomatitis [Unknown]
  - Product prescribing error [Unknown]
